FAERS Safety Report 4756600-2 (Version None)
Quarter: 2005Q3

REPORT INFORMATION
  Report Type: 
  Country: None (occurrence: None)
  Receive Date: 20050825
  Receipt Date: 20050517
  Transmission Date: 20060218
  Serious: Yes (Hospitalization, Disabling)
  Sender: FDA-Public Use
  Company Number: WAES 0503USA05191

PATIENT
  Age: 82 Year
  Sex: Male
  Weight: 76.6579 kg

DRUGS (8)
  1. VYTORIN [Suspect]
     Indication: BLOOD CHOLESTEROL INCREASED
     Dosage: 10-80 MG/HS/PO
     Route: 048
     Dates: start: 20040901, end: 20050310
  2. COUMADIN [Concomitant]
  3. K-DUR 10 [Concomitant]
  4. LASIX [Concomitant]
  5. LOPID [Concomitant]
  6. NORVASC [Concomitant]
  7. TRENTAL [Concomitant]
  8. VERAPAMIL HYDROCHLORIDE [Concomitant]

REACTIONS (4)
  - FEMORAL ARTERY OCCLUSION [None]
  - LIVER FUNCTION TEST ABNORMAL [None]
  - RENAL FAILURE [None]
  - RHABDOMYOLYSIS [None]
